FAERS Safety Report 6169859-4 (Version None)
Quarter: 2009Q2

REPORT INFORMATION
  Report Type: 
  Country: None (occurrence: None)
  Receive Date: 20090428
  Receipt Date: 20090421
  Transmission Date: 20091009
  Serious: Yes (Death, Hospitalization)
  Sender: FDA-Public Use
  Company Number: GB-BAYER-200918620GPV

PATIENT
  Age: 68 Year
  Sex: Female
  Weight: 43 kg

DRUGS (10)
  1. PLACEBO TO MOXIFLOXACIN [Suspect]
     Indication: PULMONARY TUBERCULOSIS
     Route: 048
     Dates: start: 20090311, end: 20090324
  2. RIFAMPICIN [Suspect]
     Indication: PULMONARY TUBERCULOSIS
     Route: 048
     Dates: start: 20090311, end: 20090324
  3. PYRAZINAMIDE [Suspect]
     Indication: PULMONARY TUBERCULOSIS
     Route: 048
     Dates: start: 20090311, end: 20090324
  4. ISONIAZID [Suspect]
     Indication: PULMONARY TUBERCULOSIS
     Route: 048
     Dates: start: 20090311, end: 20090324
  5. ETHAMBUTOL HCL [Suspect]
     Indication: PULMONARY TUBERCULOSIS
     Route: 048
     Dates: start: 20090311, end: 20090324
  6. BETARETIC [Suspect]
     Indication: DRUG USE FOR UNKNOWN INDICATION
     Dosage: 1 TABLET PER DAY
     Route: 048
     Dates: start: 20060101
  7. PAINAMOL [Concomitant]
     Indication: DRUG USE FOR UNKNOWN INDICATION
     Route: 048
     Dates: start: 20090309
  8. RESERPINE [Concomitant]
     Indication: DRUG USE FOR UNKNOWN INDICATION
     Route: 048
     Dates: start: 20060101
  9. AMOXIL [Concomitant]
     Indication: DRUG USE FOR UNKNOWN INDICATION
     Route: 048
     Dates: start: 20090317, end: 20090322
  10. STILPANE [Concomitant]
     Indication: DRUG USE FOR UNKNOWN INDICATION
     Dosage: 3 TABLETS PER DAY
     Route: 048
     Dates: start: 20090317, end: 20090324

REACTIONS (3)
  - CONFUSIONAL STATE [None]
  - HAEMOPTYSIS [None]
  - HYPONATRAEMIA [None]
